FAERS Safety Report 6567856-8 (Version None)
Quarter: 2010Q1

REPORT INFORMATION
  Report Type: 
  Country: None (occurrence: None)
  Receive Date: 20100203
  Receipt Date: 20100125
  Transmission Date: 20100710
  Serious: Yes (Hospitalization, Other)
  Sender: FDA-Public Use
  Company Number: US-JNJFOC-20100110989

PATIENT
  Sex: Female
  Weight: 64.86 kg

DRUGS (2)
  1. DURAGESIC-100 [Suspect]
     Indication: BACK PAIN
     Route: 062
  2. DURAGESIC-100 [Suspect]
     Route: 062

REACTIONS (6)
  - BREAKTHROUGH PAIN [None]
  - DEPRESSION [None]
  - DRUG ADMINISTERED AT INAPPROPRIATE SITE [None]
  - INADEQUATE ANALGESIA [None]
  - INTERVERTEBRAL DISC DEGENERATION [None]
  - PRODUCT ADHESION ISSUE [None]
